FAERS Safety Report 24534079 (Version 2)
Quarter: 2024Q4

REPORT INFORMATION
  Report Type: Spontaneous
  Country: IT (occurrence: IT)
  Receive Date: 20241022
  Receipt Date: 20241203
  Transmission Date: 20250115
  Serious: No
  Sender: TOLMAR
  Company Number: IT-RECORDATI-2024007841

PATIENT
  Age: 84 Year

DRUGS (1)
  1. ELIGARD [Suspect]
     Active Substance: LEUPROLIDE ACETATE
     Indication: Product used for unknown indication
     Dosage: 22.5 MILLIGRAM

REACTIONS (4)
  - Intercepted product preparation error [Unknown]
  - Device defective [Unknown]
  - Device occlusion [Unknown]
  - Syringe issue [Unknown]
